FAERS Safety Report 9095230 (Version 2)
Quarter: 2013Q1

REPORT INFORMATION
  Report Type: Spontaneous
  Country: US (occurrence: US)
  Receive Date: 20130201
  Receipt Date: 20130311
  Transmission Date: 20140127
  Serious: No
  Sender: FDA-Public Use
  Company Number: US-PFIZER INC-2013042520

PATIENT
  Age: 41 Year
  Sex: Female

DRUGS (4)
  1. VENLAFAXINE HYDROCHLORIDE [Suspect]
     Dosage: 225 MG, DAILY
     Route: 048
     Dates: start: 201112
  2. METOPROLOL [Concomitant]
     Indication: HYPERTENSION
     Dosage: 12.5 MG, 2X/DAY
  3. BUSPIRONE [Concomitant]
     Indication: ANXIETY
     Dosage: 10 MG, 3X/DAY
  4. CLONAZEPAM [Concomitant]
     Indication: ANXIETY
     Dosage: 0.5 MG, 3X/DAY

REACTIONS (1)
  - Drug screen false positive [Unknown]
